FAERS Safety Report 19192230 (Version 1)
Quarter: 2021Q2

REPORT INFORMATION
  Report Type: Spontaneous
  Country: US (occurrence: US)
  Receive Date: 20210429
  Receipt Date: 20210429
  Transmission Date: 20210717
  Serious: Yes (Death)
  Sender: FDA-Public Use
  Company Number: US-MELINTA THERAPEUTICS, LLC-US-MLNT-21-00045

PATIENT
  Age: 60 Year
  Sex: Female

DRUGS (13)
  1. MEROPENEM. [Suspect]
     Active Substance: MEROPENEM
     Indication: SEPSIS
     Dosage: NOT PROVIDED.
  2. CEFTAZIDIME?AVIBACTAM [Suspect]
     Active Substance: AVIBACTAM SODIUM\CEFTAZIDIME
     Indication: SEPSIS
     Dosage: NOT PROVIDED.
  3. MEROPENEM. [Suspect]
     Active Substance: MEROPENEM
     Indication: FLAVOBACTERIUM INFECTION
  4. MINOCYCLINE [Suspect]
     Active Substance: MINOCYCLINE HYDROCHLORIDE
     Indication: FLAVOBACTERIUM INFECTION
  5. TRIMETHOPRIM/SULFAMETHOXAZOLE [Suspect]
     Active Substance: SULFAMETHOXAZOLE\TRIMETHOPRIM
     Indication: SEPSIS
     Dosage: NOT PROVIDED.
  6. CEFTAZIDIME?AVIBACTAM [Suspect]
     Active Substance: AVIBACTAM SODIUM\CEFTAZIDIME
     Indication: FLAVOBACTERIUM INFECTION
  7. MINOCYCLINE [Suspect]
     Active Substance: MINOCYCLINE HYDROCHLORIDE
     Indication: BACTERIAL SEPSIS
     Dosage: NOT PROVIDED.
  8. VANCOMYCIN [Suspect]
     Active Substance: VANCOMYCIN
     Indication: SEPSIS
     Dosage: NOT PROVIDED.
  9. VANCOMYCIN [Suspect]
     Active Substance: VANCOMYCIN
     Indication: FLAVOBACTERIUM INFECTION
  10. AZTREONAM. [Suspect]
     Active Substance: AZTREONAM
     Indication: SEPSIS
     Dosage: NOT PROVIDED.
  11. AZTREONAM. [Suspect]
     Active Substance: AZTREONAM
     Indication: FLAVOBACTERIUM INFECTION
  12. CHEMOTHERAPY [Concomitant]
     Active Substance: UNSPECIFIED INGREDIENT
     Indication: ACUTE MYELOID LEUKAEMIA
     Dosage: NOT PROVIDED.
  13. TRIMETHOPRIM/SULFAMETHOXAZOLE [Suspect]
     Active Substance: SULFAMETHOXAZOLE\TRIMETHOPRIM
     Indication: FLAVOBACTERIUM INFECTION

REACTIONS (4)
  - Off label use [Fatal]
  - Flavobacterium infection [Fatal]
  - Bacterial sepsis [Fatal]
  - Drug ineffective for unapproved indication [Fatal]
